FAERS Safety Report 14269064 (Version 2)
Quarter: 2020Q4

REPORT INFORMATION
  Report Type: Report from Study
  Country: US (occurrence: US)
  Receive Date: 20171211
  Receipt Date: 20201027
  Transmission Date: 20210113
  Serious: Yes (Other)
  Sender: FDA-Public Use
  Company Number: US-ROCHE-2036347

PATIENT
  Age: 68 Year
  Sex: Female
  Weight: 91.8 kg

DRUGS (5)
  1. ATEZOLIZUMAB. [Suspect]
     Active Substance: ATEZOLIZUMAB
     Indication: NON-SMALL CELL LUNG CANCER
     Dosage: 60 MG/ML.  PATIENT RECEVIED ATEZOLIZUMAB DOSE 1200MG ON 06/JAN/2017, 08/MAR/2017, 31/MAR/2017,  22/A
     Route: 042
     Dates: start: 20170106
  2. CARBOPLATIN. [Suspect]
     Active Substance: CARBOPLATIN
     Dosage: CYCLE 1, DAY 36 (10 MG/ML)
     Route: 042
     Dates: start: 20170106
  3. PACLITAXEL. [Suspect]
     Active Substance: PACLITAXEL
     Indication: NON-SMALL CELL LUNG CANCER
     Dosage: 6 MG/ML CYCLE 1 DAY 36. PATIENT RECEIVED DOSE 300MG ON 27/OCT/2016, 04/NOV/2016, 14/NOV/2016, 21/NOV
     Route: 042
     Dates: start: 20161027
  4. CARBOPLATIN. [Suspect]
     Active Substance: CARBOPLATIN
     Indication: NON-SMALL CELL LUNG CANCER
     Dosage: CYCLE 1, DAY 36 (10 MG/ML). PATIENT RECEIVED DOSE 300MG ON 27/OCT/2016, 04/NOV/2016, 14/NOV/2016, 21
     Route: 042
     Dates: start: 20161027
  5. PACLITAXEL. [Suspect]
     Active Substance: PACLITAXEL
     Route: 042
     Dates: start: 20170106

REACTIONS (1)
  - Pericardial effusion [Unknown]

NARRATIVE: CASE EVENT DATE: 20170602
